FAERS Safety Report 10079911 (Version 1)
Quarter: 2014Q2

REPORT INFORMATION
  Report Type: Spontaneous
  Country: DE (occurrence: DE)
  Receive Date: 20140415
  Receipt Date: 20140415
  Transmission Date: 20141212
  Serious: Yes (Other)
  Sender: FDA-Public Use
  Company Number: DE-WATSON-2013-25017

PATIENT
  Age: 70 Year
  Sex: Male
  Weight: 78 kg

DRUGS (5)
  1. SIMVASTATIN (UNKNOWN) [Suspect]
     Indication: HYPERCHOLESTEROLAEMIA
     Route: 048
     Dates: start: 2012, end: 20130325
  2. DOPADURA C [Concomitant]
     Indication: PARKINSONISM
     Route: 048
     Dates: start: 1994
  3. AMANTADINE [Concomitant]
     Indication: PARKINSONISM
     Route: 048
     Dates: end: 20130328
  4. TASMAR [Concomitant]
     Indication: PARKINSONISM
     Route: 048
  5. RALNEA RETARD [Concomitant]
     Indication: PARKINSONISM
     Route: 048
     Dates: end: 20130406

REACTIONS (2)
  - Myopathy [Recovering/Resolving]
  - Paraparesis [Recovering/Resolving]
